FAERS Safety Report 12219458 (Version 2)
Quarter: 2016Q2

REPORT INFORMATION
  Report Type: Report from Study
  Country: US (occurrence: US)
  Receive Date: 20160329
  Receipt Date: 20160412
  Transmission Date: 20160815
  Serious: Yes (Death, Hospitalization, Other)
  Sender: FDA-Public Use
  Company Number: US-GILEAD-2016-0205704

PATIENT
  Age: 86 Year
  Sex: Male
  Weight: 72 kg

DRUGS (1)
  1. IDELALISIB [Suspect]
     Active Substance: IDELALISIB
     Indication: ACUTE LYMPHOCYTIC LEUKAEMIA
     Dosage: 150 MG, UNK
     Route: 048
     Dates: start: 20151217

REACTIONS (3)
  - Off label use [Unknown]
  - Diarrhoea [Not Recovered/Not Resolved]
  - Pneumonia [Fatal]

NARRATIVE: CASE EVENT DATE: 20160221
